FAERS Safety Report 16309619 (Version 1)
Quarter: 2019Q2

REPORT INFORMATION
  Report Type: Spontaneous
  Country: IN (occurrence: IN)
  Receive Date: 20190514
  Receipt Date: 20190514
  Transmission Date: 20190711
  Serious: Yes (Life-Threatening, Other)
  Sender: FDA-Public Use
  Company Number: IN-TORRENT-00002171

PATIENT
  Age: 57 Year
  Sex: Male

DRUGS (1)
  1. CARBAMAZEPINE. [Suspect]
     Active Substance: CARBAMAZEPINE
     Indication: SEIZURE

REACTIONS (3)
  - Hypersensitivity [Recovering/Resolving]
  - Drug level increased [Recovering/Resolving]
  - Acute generalised exanthematous pustulosis [Recovering/Resolving]
